FAERS Safety Report 9892340 (Version 2)
Quarter: 2014Q3

REPORT INFORMATION
  Report Type: Spontaneous
  Country: US (occurrence: US)
  Receive Date: 20140212
  Receipt Date: 20140811
  Transmission Date: 20150326
  Serious: Yes (Hospitalization, Other)
  Sender: FDA-Public Use
  Company Number: US-009507513-1402USA005803

PATIENT
  Sex: Female
  Weight: 72.56 kg

DRUGS (1)
  1. NUVARING [Suspect]
     Active Substance: ETHINYL ESTRADIOL\ETONOGESTREL
     Dosage: UNK
     Route: 067
     Dates: start: 200601

REACTIONS (14)
  - Intervertebral disc degeneration [Unknown]
  - Joint arthroplasty [Unknown]
  - Mammoplasty [Unknown]
  - Deep vein thrombosis [Recovering/Resolving]
  - Endometrial ablation [Unknown]
  - Bacterial vaginosis [Unknown]
  - Colposcopy [Unknown]
  - Osteoarthritis [Unknown]
  - Arthroscopy [Unknown]
  - Peripheral nerve operation [Unknown]
  - Female sterilisation [Unknown]
  - Papilloma viral infection [Unknown]
  - Pulmonary embolism [Recovering/Resolving]
  - Abdominoplasty [Unknown]

NARRATIVE: CASE EVENT DATE: 2007
